FAERS Safety Report 7991648-6 (Version None)
Quarter: 2011Q4

REPORT INFORMATION
  Report Type: 
  Country: None (occurrence: None)
  Receive Date: 20111219
  Receipt Date: 20111202
  Transmission Date: 20120403
  Serious: Yes (Death, Other)
  Sender: FDA-Public Use
  Company Number: PHHY2011AT106028

PATIENT
  Age: 75 Year
  Sex: Female

DRUGS (1)
  1. METHIMAZOLE [Suspect]
     Dosage: 20 MG, QD

REACTIONS (3)
  - PURE WHITE CELL APLASIA [None]
  - PNEUMONIA [None]
  - UROSEPSIS [None]
